FAERS Safety Report 8730411 (Version 2)
Quarter: 2012Q4

REPORT INFORMATION
  Report Type: 
  Country: US (occurrence: US)
  Receive Date: 20120817
  Receipt Date: 20121015
  Transmission Date: 20130627
  Serious: Yes (Death)
  Sender: FDA-Public Use
  Company Number: US-ASTRAZENECA-2012SE57392

PATIENT
  Age: 58 Year
  Sex: Male

DRUGS (3)
  1. SYMBICORT PMDI [Suspect]
     Dosage: FREQUENCY UNKNOWN
     Route: 055
  2. MORPHIN [Concomitant]
  3. OXYGEN [Concomitant]

REACTIONS (1)
  - Chronic obstructive pulmonary disease [Fatal]
